FAERS Safety Report 4716574-7 (Version None)
Quarter: 2005Q3

REPORT INFORMATION
  Report Type: 
  Country: None (occurrence: None)
  Receive Date: 20050718
  Receipt Date: 20050527
  Transmission Date: 20060218
  Serious: Yes (Other)
  Sender: FDA-Public Use
  Company Number: TRP_0140_2005

PATIENT
  Age: 47 Year
  Sex: Male

DRUGS (4)
  1. RIBASPHERE [Suspect]
     Indication: HEPATITIS C
     Dosage: MG PO
     Route: 048
     Dates: start: 20050128
  2. PEG-INTRON [Suspect]
     Indication: HEPATITIS C
     Dosage: DF SC
     Route: 058
     Dates: start: 20050128
  3. LEXAPRO [Concomitant]
  4. STEROIDS [Concomitant]

REACTIONS (4)
  - ANAPHYLACTIC REACTION [None]
  - CONCUSSION [None]
  - FALL [None]
  - HEAD INJURY [None]
